FAERS Safety Report 13541803 (Version 2)
Quarter: 2017Q2

REPORT INFORMATION
  Report Type: Spontaneous
  Country: BE (occurrence: BE)
  Receive Date: 20170512
  Receipt Date: 20170522
  Transmission Date: 20170830
  Serious: Yes (Other)
  Sender: FDA-Public Use
  Company Number: PHHY2017BE066834

PATIENT
  Age: 58 Year
  Sex: Female

DRUGS (1)
  1. GILENYA [Suspect]
     Active Substance: FINGOLIMOD HYDROCHLORIDE
     Indication: MULTIPLE SCLEROSIS
     Dosage: 0.5 MG, UNK
     Route: 048
     Dates: start: 2013, end: 2017

REACTIONS (5)
  - Eczema [Unknown]
  - Mycosis fungoides [Unknown]
  - Dermatitis [Unknown]
  - Skin lesion [Unknown]
  - Parakeratosis [Unknown]

NARRATIVE: CASE EVENT DATE: 20170323
